FAERS Safety Report 10541414 (Version 1)
Quarter: 2014Q4

REPORT INFORMATION
  Report Type: Spontaneous
  Country: US (occurrence: None)
  Receive Date: 20141010
  Receipt Date: 20141010
  Transmission Date: 20150529
  Serious: Yes (Other)
  Sender: FDA-Public Use
  Company Number: 163-POMAL-14080421

PATIENT
  Age: 66 Year
  Sex: Male

DRUGS (2)
  1. POMALYST [Suspect]
     Active Substance: POMALIDOMIDE
     Indication: PLASMA CELL MYELOMA
     Dosage: 4 MG, 21 IN 28 D, PO?
     Route: 048
     Dates: start: 20140710, end: 20140725
  2. AMLODIPINE (AMLODIPINE) (UNKNOWN) [Concomitant]

REACTIONS (3)
  - Heart rate increased [None]
  - Anaemia [None]
  - Dyspnoea [None]

NARRATIVE: CASE EVENT DATE: 20140728
